FAERS Safety Report 7731769-6 (Version None)
Quarter: 2011Q3

REPORT INFORMATION
  Report Type: 
  Country: None (occurrence: None)
  Receive Date: 20110906
  Receipt Date: 20110823
  Transmission Date: 20111222
  Serious: Yes (Other)
  Sender: FDA-Public Use
  Company Number: PHHY2011JP70689

PATIENT
  Sex: Female
  Weight: 44 kg

DRUGS (7)
  1. OLMESARTAN MEDOXOMIL [Concomitant]
     Indication: HYPERTENSION
     Dosage: 20 MG, UNK
     Route: 048
     Dates: start: 20100809
  2. NIZATIDINE [Concomitant]
     Indication: GASTROOESOPHAGEAL REFLUX DISEASE
     Dosage: 300 MG, UNK
     Route: 048
     Dates: start: 20101005
  3. EXELON [Suspect]
     Indication: DEMENTIA ALZHEIMER'S TYPE
     Dosage: 4.5 MG, 1 PATCH DAILY
     Route: 062
     Dates: start: 20110726, end: 20110729
  4. AMLODIPINE [Concomitant]
     Indication: HYPERTENSION
     Dosage: 5 MG, UNK
     Route: 048
     Dates: start: 20100809
  5. EVISTA [Concomitant]
     Indication: OSTEOPOROSIS
     Dosage: 60 MG, UNK
     Route: 048
     Dates: start: 20110111
  6. LENDORMIN [Concomitant]
     Indication: INSOMNIA
     Dosage: 0.5 MG, UNK
     Route: 048
     Dates: start: 20100705
  7. URITOS OD [Concomitant]
     Indication: HYPERTONIC BLADDER
     Dosage: 0.2 MG, UNK
     Route: 048
     Dates: start: 20110418

REACTIONS (6)
  - RESTLESSNESS [None]
  - PORIOMANIA [None]
  - DELIRIUM [None]
  - ABNORMAL BEHAVIOUR [None]
  - INCONTINENCE [None]
  - INSOMNIA [None]
